FAERS Safety Report 17926664 (Version 1)
Quarter: 2020Q2

REPORT INFORMATION
  Report Type: Spontaneous
  Country: US (occurrence: US)
  Receive Date: 20200623
  Receipt Date: 20200623
  Transmission Date: 20200714
  Serious: No
  Sender: FDA-Public Use
  Company Number: US-TARO-2019TAR00358

PATIENT
  Age: 71 Year
  Sex: Female

DRUGS (1)
  1. CLORAZEPATE DIPOTASSIUM TABLETS USP 3.75 MG [Suspect]
     Active Substance: CLORAZEPATE DIPOTASSIUM

REACTIONS (3)
  - Heart rate abnormal [Recovered/Resolved]
  - Reaction to excipient [Recovered/Resolved]
  - Product substitution issue [Unknown]
